FAERS Safety Report 6645282-0 (Version None)
Quarter: 2010Q1

REPORT INFORMATION
  Report Type: 
  Country: None (occurrence: None)
  Receive Date: 20100322
  Receipt Date: 20100318
  Transmission Date: 20100710
  Serious: Yes (Life-Threatening, Hospitalization, Other)
  Sender: FDA-Public Use
  Company Number: PHHY2010JP07224

PATIENT
  Sex: Male
  Weight: 28 kg

DRUGS (10)
  1. NEORAL [Suspect]
     Indication: FOCAL SEGMENTAL GLOMERULOSCLEROSIS
     Dosage: 0.6 ML, BID
     Route: 048
     Dates: start: 20070426
  2. NEORAL [Suspect]
     Indication: NEPHROTIC SYNDROME
  3. PREDONINE [Suspect]
     Indication: NEPHROTIC SYNDROME
     Dosage: 6 DF, EVERY OTHER WEEK
     Route: 048
     Dates: start: 20070426, end: 20080801
  4. BREDININ [Suspect]
     Indication: NEPHROTIC SYNDROME
     Dosage: 8 TABLETS DAILY
     Route: 048
     Dates: start: 20070426
  5. CYCLOPHOSPHAMIDE [Concomitant]
  6. FAMOTIDINE [Concomitant]
     Indication: GASTRITIS
     Dosage: 2 DF, UNK
     Route: 048
     Dates: start: 20070426, end: 20080620
  7. WARFARIN SODIUM [Concomitant]
     Indication: THROMBOSIS PROPHYLAXIS
     Dosage: 3 DF, UNK
     Route: 048
     Dates: start: 20080104
  8. RENIVACE [Concomitant]
     Indication: HYPERTENSION
     Dosage: 2 DF, UNK
     Route: 048
     Dates: start: 20070426
  9. COTRIM [Concomitant]
     Indication: PNEUMONIA
     Dosage: 1.5 DF, UNK
     Route: 048
     Dates: start: 20071010, end: 20080815
  10. METHYLPREDNISOLONE [Concomitant]
     Dosage: 30 MG/KG/DAY
     Dates: start: 20070828

REACTIONS (17)
  - BLOOD ALKALINE PHOSPHATASE INCREASED [None]
  - BLOOD URIC ACID INCREASED [None]
  - CARDIAC MURMUR [None]
  - COUGH [None]
  - DISSEMINATED INTRAVASCULAR COAGULATION [None]
  - HYPERCOAGULATION [None]
  - HYPOALBUMINAEMIA [None]
  - INTRACARDIAC THROMBUS [None]
  - MASS EXCISION [None]
  - NEPHROTIC SYNDROME [None]
  - OEDEMA [None]
  - PNEUMONIA BACTERIAL [None]
  - PNEUMONIA FUNGAL [None]
  - PYREXIA [None]
  - RED BLOOD CELL COUNT DECREASED [None]
  - THORACOTOMY [None]
  - WHITE BLOOD CELL COUNT INCREASED [None]
